FAERS Safety Report 15241708 (Version 1)
Quarter: 2018Q3

REPORT INFORMATION
  Report Type: Spontaneous
  Country: US (occurrence: US)
  Receive Date: 20180712
  Receipt Date: 20180712
  Transmission Date: 20181010
  Serious: Yes (Hospitalization)
  Sender: FDA-Public Use
  Company Number: None

PATIENT
  Sex: Female

DRUGS (17)
  1. MAGNESIUM [Concomitant]
     Active Substance: MAGNESIUM
  2. IBUPROFEN. [Concomitant]
     Active Substance: IBUPROFEN
  3. CHOLESTYRAM [Concomitant]
     Active Substance: CHOLESTYRAMINE
  4. HYDROXYCHLOR [Concomitant]
     Active Substance: HYDROXYCHLOROQUINE
  5. AZATHIOPRINE. [Concomitant]
     Active Substance: AZATHIOPRINE
  6. PREDNISONE. [Concomitant]
     Active Substance: PREDNISONE
  7. ESOMPERAZOLE [Concomitant]
     Active Substance: ESOMEPRAZOLE SODIUM
  8. MESALAMNE [Concomitant]
  9. MULTIVITAMIN [Concomitant]
     Active Substance: VITAMINS
  10. STELARA [Suspect]
     Active Substance: USTEKINUMAB
     Indication: CROHN^S DISEASE
     Dosage: ?          OTHER FREQUENCY:ONCE EVERY 4 WEEKS;?
     Route: 058
  11. CALCIUM [Concomitant]
     Active Substance: CALCIUM
  12. NEXIUM [Concomitant]
     Active Substance: ESOMEPRAZOLE MAGNESIUM
  13. CYANOCOBALAM [Concomitant]
     Active Substance: CYANOCOBALAMIN
  14. FERROUS SULF [Concomitant]
     Active Substance: FERROUS SULFATE
  15. ASPIRIN. [Concomitant]
     Active Substance: ASPIRIN
  16. PROVENTIL [Concomitant]
     Active Substance: ALBUTEROL
  17. WAL? ZYR [Concomitant]

REACTIONS (2)
  - Crohn^s disease [None]
  - Abdominal pain [None]
